FAERS Safety Report 10257761 (Version 1)
Quarter: 2014Q2

REPORT INFORMATION
  Report Type: Spontaneous
  Country: FR (occurrence: FR)
  Receive Date: 20140625
  Receipt Date: 20140625
  Transmission Date: 20141212
  Serious: Yes (Disabling)
  Sender: FDA-Public Use
  Company Number: FR-TEVA-489496ISR

PATIENT
  Age: 79 Year
  Sex: Male

DRUGS (6)
  1. VERAPAMIL RATIOPHARM 40MG [Suspect]
     Route: 048
  2. PLAVIX 75MG [Suspect]
     Dosage: 1 DOSAGE FORMS DAILY;
     Route: 048
  3. ZOXAN LP 4MG [Suspect]
     Dosage: 1 DOSAGE FORMS DAILY;
     Route: 048
     Dates: end: 200911
  4. TEMESTA 1MG [Suspect]
     Dosage: 1.5 DOSAGE FORMS DAILY;
     Route: 048
  5. FUROSEMIDE RPG [Suspect]
     Route: 048
     Dates: end: 200911
  6. STABLON [Concomitant]

REACTIONS (1)
  - Dermatitis exfoliative [Not Recovered/Not Resolved]
